FAERS Safety Report 9468894 (Version 1)
Quarter: 2013Q3

REPORT INFORMATION
  Report Type: Spontaneous
  Country: SG (occurrence: SG)
  Receive Date: 20130821
  Receipt Date: 20130821
  Transmission Date: 20140515
  Serious: Yes (Other)
  Sender: FDA-Public Use
  Company Number: SG-BAYER-2013-100780

PATIENT
  Sex: 0

DRUGS (1)
  1. ACETYLSALICYLIC ACID({=100 MG) [Suspect]
     Dosage: 100 MG, QD
     Route: 048
     Dates: start: 20130621, end: 20130623

REACTIONS (2)
  - Urticaria [Recovered/Resolved]
  - Angioedema [Recovered/Resolved]
